FAERS Safety Report 9432385 (Version 2)
Quarter: 2013Q3

REPORT INFORMATION
  Report Type: Spontaneous
  Country: US (occurrence: US)
  Receive Date: 20130731
  Receipt Date: 20130906
  Transmission Date: 20140515
  Serious: Yes (Hospitalization)
  Sender: FDA-Public Use
  Company Number: US-TEVA-419761USA

PATIENT
  Age: 37 Year
  Sex: Female

DRUGS (2)
  1. PARAGARD 380A [Suspect]
     Indication: CONTRACEPTION
     Route: 015
     Dates: start: 20130522, end: 20130708
  2. PARAGARD 380A [Suspect]
     Route: 015
     Dates: start: 2013

REACTIONS (1)
  - Device expulsion [Recovered/Resolved]
